FAERS Safety Report 13303902 (Version 1)
Quarter: 2017Q1

REPORT INFORMATION
  Report Type: Not Available
  Country: BE (occurrence: BE)
  Receive Date: 20170307
  Receipt Date: 20170307
  Transmission Date: 20170428
  Serious: Yes (Other)
  Sender: FDA-Public Use
  Company Number: BE--2017-BE-000002

PATIENT
  Age: 58 Year
  Sex: Female
  Weight: 64 kg

DRUGS (2)
  1. VALSARTAN. [Suspect]
     Active Substance: VALSARTAN
     Indication: PULMONARY ARTERIAL HYPERTENSION
     Dosage: 3680MG OF VALSARTAN
  2. AMLODIPINE BESYLATE BRAND UNSPECIFIED (VIVIMED) [Suspect]
     Active Substance: AMLODIPINE BESYLATE
     Indication: PULMONARY ARTERIAL HYPERTENSION
     Dosage: 480MG OF AMLODIPINE

REACTIONS (2)
  - Distributive shock [Recovered/Resolved]
  - Intentional overdose [Unknown]
